FAERS Safety Report 25926827 (Version 1)
Quarter: 2025Q4

REPORT INFORMATION
  Report Type: Spontaneous
  Country: US (occurrence: None)
  Receive Date: 20251015
  Receipt Date: 20251015
  Transmission Date: 20260117
  Serious: Yes (Hospitalization)
  Sender: FDA-CTU
  Company Number: None

PATIENT
  Age: 66 Year
  Sex: Male
  Weight: 115.8 kg

DRUGS (3)
  1. CARBOPLATIN [Suspect]
     Active Substance: CARBOPLATIN
     Dates: end: 20250624
  2. TAXOL [Suspect]
     Active Substance: PACLITAXEL
     Dates: end: 20250624
  3. PEMBROLIZUMAB [Suspect]
     Active Substance: PEMBROLIZUMAB
     Dates: end: 20250715

REACTIONS (7)
  - Pneumonitis [None]
  - Fibrosis [None]
  - Bronchiectasis [None]
  - Acute respiratory failure [None]
  - Chronic obstructive pulmonary disease [None]
  - Interstitial lung disease [None]
  - Organising pneumonia [None]

NARRATIVE: CASE EVENT DATE: 20251006
